FAERS Safety Report 8242596-8 (Version None)
Quarter: 2012Q1

REPORT INFORMATION
  Report Type: 
  Country: None (occurrence: None)
  Receive Date: 20120329
  Receipt Date: 20120326
  Transmission Date: 20120608
  Serious: Yes (Hospitalization)
  Sender: FDA-Public Use
  Company Number: PHEH2012US002348

PATIENT
  Sex: Male
  Weight: 70.5 kg

DRUGS (6)
  1. AZITHROMYCIN [Concomitant]
     Indication: CYSTIC FIBROSIS
     Route: 048
  2. TOBI [Suspect]
     Indication: PSEUDOMONAS INFECTION
     Dosage: 300 MG, BID VIA NEBULIZER IN A CYCLE OF 28 DAYS ON AND 28 DAYS OFF
  3. PULMOZYME [Concomitant]
     Indication: CYSTIC FIBROSIS
  4. PACREAZE 21 [Concomitant]
     Indication: CYSTIC FIBROSIS
     Dosage: 3 DF, TID W/MEALS
     Route: 048
  5. ALBUTEROL [Concomitant]
     Indication: CYSTIC FIBROSIS
     Dosage: 4 DF, QD
  6. ADEK MULTIVITAMIN [Concomitant]
     Indication: CYSTIC FIBROSIS
     Dosage: 2 DF, QD

REACTIONS (4)
  - INFECTIVE PULMONARY EXACERBATION OF CYSTIC FIBROSIS [None]
  - VIRAL INFECTION [None]
  - PNEUMONIA [None]
  - DYSPNOEA [None]
